FAERS Safety Report 15289257 (Version 1)
Quarter: 2018Q3

REPORT INFORMATION
  Report Type: Spontaneous
  Country: US (occurrence: US)
  Receive Date: 20180803
  Receipt Date: 20180803
  Transmission Date: 20181010
  Serious: Yes (Life-Threatening, Hospitalization)
  Sender: FDA-Public Use
  Company Number: None

PATIENT
  Age: 77 Year
  Sex: Male
  Weight: 90 kg

DRUGS (3)
  1. SOTALOL. [Concomitant]
     Active Substance: SOTALOL
  2. METOROLOL [Concomitant]
  3. VALSARTAN ? THREW AWAY EVERYTHING [Suspect]
     Active Substance: VALSARTAN
     Dosage: ?          QUANTITY:1 DF DOSAGE FORM;?
     Route: 048
     Dates: start: 20160605, end: 20180701

REACTIONS (9)
  - Product quality issue [None]
  - Feeling abnormal [None]
  - Wrong drug [None]
  - Transient ischaemic attack [None]
  - Thrombosis [None]
  - Cerebral haemorrhage [None]
  - Blindness transient [None]
  - Cerebrovascular accident [None]
  - Brain injury [None]

NARRATIVE: CASE EVENT DATE: 20160605
